FAERS Safety Report 19948319 (Version 9)
Quarter: 2022Q1

REPORT INFORMATION
  Report Type: Spontaneous
  Country: TR (occurrence: TR)
  Receive Date: 20211012
  Receipt Date: 20220308
  Transmission Date: 20220423
  Serious: Yes (Life-Threatening, Hospitalization)
  Sender: FDA-Public Use
  Company Number: TR-CELGENE-TUR-20211000603

PATIENT
  Age: 72 Year
  Sex: Male
  Weight: 72 kg

DRUGS (27)
  1. AZACITIDINE [Suspect]
     Active Substance: AZACITIDINE
     Indication: Myelodysplastic syndrome
     Dosage: 75 MILLIGRAM/SQ. METER
     Route: 058
     Dates: start: 20210426, end: 20210914
  2. AZACITIDINE [Suspect]
     Active Substance: AZACITIDINE
     Dosage: 75 MILLIGRAM/SQ. METER
     Route: 058
     Dates: start: 20211108
  3. VENETOCLAX [Suspect]
     Active Substance: VENETOCLAX
     Indication: Myelodysplastic syndrome
     Dosage: 400 MILLIGRAM
     Route: 048
     Dates: start: 20210426, end: 20210606
  4. VENETOCLAX [Suspect]
     Active Substance: VENETOCLAX
     Dosage: 200 MILLIGRAM
     Route: 048
     Dates: start: 20210618, end: 20210919
  5. VENETOCLAX [Suspect]
     Active Substance: VENETOCLAX
     Dosage: 200 MILLIGRAM
     Route: 048
     Dates: start: 20211108
  6. VALTREX [Concomitant]
     Active Substance: VALACYCLOVIR HYDROCHLORIDE
     Indication: Infection prophylaxis
     Dosage: 500 MILLIGRAM
     Route: 048
  7. Tanflex Gargara [Concomitant]
     Indication: Prophylaxis
     Dosage: 45 MILLIGRAM
     Route: 048
     Dates: start: 20210426
  8. FLUCONAZOLE [Concomitant]
     Active Substance: FLUCONAZOLE
     Indication: Infection prophylaxis
     Dosage: 100 MILLIGRAM
     Route: 048
     Dates: start: 20210426, end: 20211004
  9. CARVEDILOL [Concomitant]
     Active Substance: CARVEDILOL
     Indication: Myocardial infarction
     Dosage: 6.25 MILLIGRAM
     Route: 048
     Dates: start: 20210410
  10. DIGOXIN [Concomitant]
     Active Substance: DIGOXIN
     Indication: Myocardial infarction
     Dosage: .25 MILLIGRAM
     Route: 048
     Dates: start: 20210410
  11. INSPRA [Concomitant]
     Active Substance: EPLERENONE
     Indication: Myocardial infarction
     Dosage: 25 MILLIGRAM
     Route: 048
     Dates: start: 20210410
  12. PANTOPRAZOLE SODIUM [Concomitant]
     Active Substance: PANTOPRAZOLE SODIUM
     Indication: Prophylaxis
     Dosage: 40 MILLIGRAM
     Route: 048
     Dates: start: 20210410
  13. TAZERACIN [Concomitant]
     Indication: Neutropenia
     Dosage: 13.5 GRAM
     Route: 041
     Dates: start: 20210819, end: 20210827
  14. TAZERACIN [Concomitant]
     Dosage: 13.5 GRAM
     Route: 041
     Dates: start: 20210907, end: 20210917
  15. TAZERACIN [Concomitant]
     Dosage: 13.5 GRAM
     Route: 041
     Dates: start: 20210927, end: 20210928
  16. KYTRIL [Concomitant]
     Active Substance: GRANISETRON HYDROCHLORIDE
     Indication: Premedication
     Dosage: 3 MILLIGRAM
     Route: 041
     Dates: start: 20210426
  17. ACETAMINOPHEN\CAFFEINE\CODEINE PHOSPHATE [Concomitant]
     Active Substance: ACETAMINOPHEN\CAFFEINE\CODEINE PHOSPHATE
     Indication: Product used for unknown indication
     Route: 065
  18. BUDICORT [Concomitant]
     Indication: Product used for unknown indication
     Route: 065
  19. FUROSEMIDE [Concomitant]
     Active Substance: FUROSEMIDE
     Indication: Product used for unknown indication
     Route: 065
  20. AKLOVIR [Concomitant]
     Indication: Product used for unknown indication
     Route: 065
  21. NYSTATIN [Concomitant]
     Active Substance: NYSTATIN
     Indication: Product used for unknown indication
     Route: 065
  22. TRANEXAMIC ACID [Concomitant]
     Active Substance: TRANEXAMIC ACID
     Indication: Haemorrhage
     Route: 065
     Dates: start: 20210922, end: 20210928
  23. HIRUDOID FORTE [Concomitant]
     Indication: Subdural haemorrhage
     Route: 061
     Dates: start: 20210820
  24. BACTROBAN [Concomitant]
     Active Substance: MUPIROCIN\MUPIROCIN CALCIUM
     Indication: Rash
     Route: 061
     Dates: start: 20210910
  25. COSMETICS [Concomitant]
     Active Substance: COSMETICS
     Indication: Rash
     Route: 061
     Dates: start: 20210910
  26. Gronosit [Concomitant]
     Indication: Premedication
     Route: 041
     Dates: start: 20210910
  27. Levmont TB [Concomitant]
     Indication: Infection prophylaxis
     Dosage: 5/10MG
     Route: 065
     Dates: start: 20210901, end: 20211101

REACTIONS (4)
  - Thrombocytopenia [Not Recovered/Not Resolved]
  - Sepsis [Recovered/Resolved]
  - Bacterial infection [Recovered/Resolved]
  - Pneumonia [Recovered/Resolved]

NARRATIVE: CASE EVENT DATE: 20210927
